FAERS Safety Report 7903682-2 (Version None)
Quarter: 2011Q4

REPORT INFORMATION
  Report Type: 
  Country: None (occurrence: None)
  Receive Date: 20111109
  Receipt Date: 20111102
  Transmission Date: 20120403
  Serious: Yes (Hospitalization)
  Sender: FDA-Public Use
  Company Number: GB-BAYER-2011-097451

PATIENT
  Age: 59 Year
  Sex: Male

DRUGS (5)
  1. ATENOLOL [Concomitant]
     Indication: HYPERTENSION
     Dosage: DAILY DOSE 50 MG
     Dates: start: 19900101
  2. ADALAT [Concomitant]
     Indication: HYPERTENSION
     Dosage: DAILY DOSE 90 MG
     Dates: start: 20110222
  3. SORAFENIB (RAF KINASE INHIBITOR) [Suspect]
     Indication: PRODUCT USED FOR UNKNOWN INDICATION
     Dosage: 200 MG, UNK
     Route: 048
     Dates: start: 20090420, end: 20110920
  4. RAMIPRIL [Concomitant]
     Indication: HYPERTENSION
     Dosage: DAILY DOSE 10 MG
     Dates: start: 20100901
  5. ADALAT [Concomitant]
     Dosage: 60 MG, QD
     Dates: start: 20000101

REACTIONS (4)
  - APHAGIA [None]
  - CEREBROVASCULAR ACCIDENT [None]
  - HYPOAESTHESIA [None]
  - DIPLOPIA [None]
